FAERS Safety Report 6985255-1 (Version None)
Quarter: 2010Q3

REPORT INFORMATION
  Report Type: 
  Country: None (occurrence: None)
  Receive Date: 20100915
  Receipt Date: 20100907
  Transmission Date: 20110219
  Serious: Yes (Hospitalization)
  Sender: FDA-Public Use
  Company Number: DE-US-EMD SERONO, INC.-7005706

PATIENT
  Sex: Female
  Weight: 60 kg

DRUGS (6)
  1. REBIF [Suspect]
     Indication: PRODUCT USED FOR UNKNOWN INDICATION
     Route: 058
     Dates: start: 20081001, end: 20100518
  2. LYRICA [Concomitant]
     Route: 048
  3. CITALOPRAM HYDROBROMIDE [Concomitant]
     Route: 048
  4. MIRAPEXIN, SIFROL [Concomitant]
     Route: 048
  5. IBUPROFEN [Concomitant]
     Route: 048
  6. OMEP [Concomitant]

REACTIONS (4)
  - EPILEPSY [None]
  - HAEMOGLOBIN ABNORMAL [None]
  - LIVER FUNCTION TEST ABNORMAL [None]
  - THROMBOCYTOPENIA [None]
